FAERS Safety Report 17243300 (Version 4)
Quarter: 2020Q1

REPORT INFORMATION
  Report Type: Spontaneous
  Country: DE (occurrence: DE)
  Receive Date: 20200107
  Receipt Date: 20200130
  Transmission Date: 20200409
  Serious: Yes (Other)
  Sender: FDA-Public Use
  Company Number: DE-PFIZER INC-2020001164

PATIENT
  Age: 58 Year
  Sex: Female

DRUGS (6)
  1. ESOMEPRAZOLE SODIUM. [Interacting]
     Active Substance: ESOMEPRAZOLE SODIUM
     Dosage: UNK
     Route: 065
  2. THYROXINE [Concomitant]
     Active Substance: LEVOTHYROXINE
     Dosage: UNK
     Route: 065
  3. RAMIPRIL. [Suspect]
     Active Substance: RAMIPRIL
     Dosage: UNK
     Route: 048
  4. AMLODIPINE BESILATE [Interacting]
     Active Substance: AMLODIPINE BESYLATE
     Dosage: UNK
     Route: 065
  5. HYDROXYCHLOROQUINE [Interacting]
     Active Substance: HYDROXYCHLOROQUINE
     Dosage: UNK
     Route: 065
  6. BOSWELLIA SERRATA;COLECALCIFEROL;CURCUMA LONGA RHIZOME;GLUCOSAMINE SUL [Suspect]
     Active Substance: DIETARY SUPPLEMENT
     Indication: RHEUMATOID ARTHRITIS
     Dosage: UNK
     Route: 065

REACTIONS (2)
  - Acute febrile neutrophilic dermatosis [Recovering/Resolving]
  - Drug interaction [Unknown]

NARRATIVE: CASE EVENT DATE: 201710
